FAERS Safety Report 9468142 (Version 1)
Quarter: 2013Q3

REPORT INFORMATION
  Report Type: Report from Study
  Country: CA (occurrence: CA)
  Receive Date: 20130821
  Receipt Date: 20130821
  Transmission Date: 20140515
  Serious: Yes (Other)
  Sender: FDA-Public Use
  Company Number: CA-JNJFOC-20130808113

PATIENT
  Sex: Male

DRUGS (7)
  1. REMICADE [Suspect]
     Indication: CROHN^S DISEASE
     Route: 042
     Dates: start: 20100326
  2. REMICADE [Suspect]
     Indication: CROHN^S DISEASE
     Route: 042
     Dates: start: 20130628
  3. IMURAN [Concomitant]
     Route: 065
  4. PERCOCET [Concomitant]
     Route: 065
  5. VITAMIN B12 [Concomitant]
     Route: 065
  6. OXYCONTIN [Concomitant]
     Route: 065
  7. CELEXA [Concomitant]
     Route: 065

REACTIONS (2)
  - Foot fracture [Unknown]
  - Fall [Unknown]
